FAERS Safety Report 12098944 (Version 1)
Quarter: 2016Q1

REPORT INFORMATION
  Report Type: Spontaneous
  Country: US (occurrence: None)
  Receive Date: 20160219
  Receipt Date: 20160219
  Transmission Date: 20160526
  Serious: No
  Sender: FDA-Public Use
  Company Number: None

PATIENT
  Age: 63 Year
  Sex: Male
  Weight: 104.33 kg

DRUGS (6)
  1. METFORMIN [Concomitant]
     Active Substance: METFORMIN HYDROCHLORIDE
  2. FISH OIL [Concomitant]
     Active Substance: FISH OIL
  3. DAILY MULTIVITAMIN [Concomitant]
     Active Substance: VITAMINS
  4. TRADJENTA [Concomitant]
     Active Substance: LINAGLIPTIN
  5. WELCHOL [Suspect]
     Active Substance: COLESEVELAM HYDROCHLORIDE
     Indication: TYPE 2 DIABETES MELLITUS
     Route: 048
     Dates: start: 20151210, end: 20160130
  6. BYDUREON [Concomitant]
     Active Substance: EXENATIDE

REACTIONS (3)
  - Chest pain [None]
  - Hiatus hernia [None]
  - Blood glucose increased [None]

NARRATIVE: CASE EVENT DATE: 20160130
